FAERS Safety Report 7620776-X (Version None)
Quarter: 2011Q3

REPORT INFORMATION
  Report Type: 
  Country: None (occurrence: None)
  Receive Date: 20110719
  Receipt Date: 20110711
  Transmission Date: 20111222
  Serious: Yes (Hospitalization, Other)
  Sender: FDA-Public Use
  Company Number: US-ALEXION-A201100708

PATIENT
  Sex: Female

DRUGS (15)
  1. PREDNISONE [Concomitant]
     Dosage: 20 MG BID
  2. ERRIN [Concomitant]
     Dosage: UNK QD
  3. LEXAPRO [Concomitant]
     Dosage: 20 MG QD
  4. AMBIEN [Concomitant]
     Dosage: 2 MG QD
  5. MORPHINE SULFATE [Concomitant]
     Dosage: 30 MG PRN
  6. NEUPOGEN [Concomitant]
     Dosage: 300 MG 2XWEEK
  7. SOLIRIS [Suspect]
     Indication: PAROXYSMAL NOCTURNAL HAEMOGLOBINURIA
     Dosage: 900 MG, Q2W
     Route: 042
  8. ZOFRAN [Concomitant]
     Dosage: 8 MG PRN
  9. PROTONIX [Concomitant]
     Dosage: UNK QD
  10. CYCLOSPORINE [Concomitant]
     Dosage: 150 MG BID
  11. CYCLOSPORINE [Concomitant]
     Dosage: 200 MBQ, QD
     Dates: start: 20110710
  12. COLACE [Concomitant]
     Dosage: UNK PRN
  13. MORPHINE [Concomitant]
     Dosage: 50 MG QD
  14. IMITREX [Concomitant]
     Dosage: UNK PRN
  15. MULTI-VITAMIN [Concomitant]
     Dosage: UNK QD

REACTIONS (8)
  - APLASTIC ANAEMIA [None]
  - HYPOKALAEMIA [None]
  - HYPOMAGNESAEMIA [None]
  - LIVER FUNCTION TEST ABNORMAL [None]
  - CONDITION AGGRAVATED [None]
  - OEDEMA PERIPHERAL [None]
  - ARTHRALGIA [None]
  - THROMBOCYTOPENIA [None]
